FAERS Safety Report 16581683 (Version 1)
Quarter: 2019Q3

REPORT INFORMATION
  Report Type: Other
  Country: DK (occurrence: DK)
  Receive Date: 20190716
  Receipt Date: 20190716
  Transmission Date: 20191004
  Serious: Yes (Other)
  Sender: FDA-Public Use
  Company Number: DK-CELLTRION INC.-2019DK021246

PATIENT

DRUGS (2)
  1. SERTRALINE [Concomitant]
     Active Substance: SERTRALINE HYDROCHLORIDE
     Indication: DEPRESSION
     Dosage: 100 MG, DAILY (STRYKE: 50 MG; CUMULATIVE DOSE TO FIRST REACTION: 140300 MG)
     Route: 048
     Dates: start: 20150531
  2. INFLIXIMAB (UNKNOWN) [Suspect]
     Active Substance: INFLIXIMAB
     Indication: COLITIS ULCERATIVE
     Dosage: 300 MG, 6 WEEK (STYRKE: 300 MG; CUMULATIVE DOSE TO FIRST REACTION: 142.55952 MG)
     Dates: start: 20190314, end: 20190403

REACTIONS (4)
  - Anaphylactic shock [Unknown]
  - Dyspnoea [Recovered/Resolved]
  - Chest discomfort [Recovered/Resolved]
  - Hyperventilation [Recovered/Resolved]

NARRATIVE: CASE EVENT DATE: 20190403
